FAERS Safety Report 4764917-0 (Version None)
Quarter: 2005Q3

REPORT INFORMATION
  Report Type: 
  Country: None (occurrence: None)
  Receive Date: 20050909
  Receipt Date: 20050831
  Transmission Date: 20060218
  Serious: Yes (Hospitalization)
  Sender: FDA-Public Use
  Company Number: US-JNJFOC-20050901088

PATIENT
  Sex: Female
  Weight: 106.6 kg

DRUGS (3)
  1. DURAGESIC-100 [Suspect]
     Route: 062
     Dates: start: 20010101
  2. LORCET-HD [Concomitant]
     Route: 048
     Dates: start: 20010101
  3. LORCET-HD [Concomitant]
     Indication: PAIN
     Dosage: HYDROCODONE BITARTRATE 10 MG, ACETAMINOPHEN 650 MG
     Route: 048
     Dates: start: 20010101

REACTIONS (4)
  - CEREBROVASCULAR ACCIDENT [None]
  - DIARRHOEA [None]
  - STAPHYLOCOCCAL INFECTION [None]
  - VOMITING [None]
